FAERS Safety Report 15276178 (Version 1)
Quarter: 2018Q3

REPORT INFORMATION
  Report Type: Spontaneous
  Country: US (occurrence: US)
  Receive Date: 20180727
  Receipt Date: 20180727
  Transmission Date: 20181010
  Serious: Yes (Hospitalization)
  Sender: FDA-Public Use
  Company Number: None

PATIENT
  Age: 76 Year
  Sex: Female

DRUGS (15)
  1. DAPSONE. [Concomitant]
     Active Substance: DAPSONE
  2. FLUTICASONE. [Concomitant]
     Active Substance: FLUTICASONE
  3. ACYCLOVIR. [Concomitant]
     Active Substance: ACYCLOVIR
  4. BLINATUMOMAB [Suspect]
     Active Substance: BLINATUMOMAB
     Indication: LEUKAEMIA
     Route: 042
     Dates: start: 20180525
  5. IPRATROPIUM [Concomitant]
     Active Substance: IPRATROPIUM
  6. INSULIN ASPART [Concomitant]
     Active Substance: INSULIN ASPART
  7. CEFEPIME [Concomitant]
     Active Substance: CEFEPIME HYDROCHLORIDE
  8. ALLOPURINOL. [Concomitant]
     Active Substance: ALLOPURINOL
  9. ESCITALOPRAM [Concomitant]
     Active Substance: ESCITALOPRAM OXALATE
  10. SALMETEROL [Concomitant]
     Active Substance: SALMETEROL
  11. FUROSEMIDE. [Concomitant]
     Active Substance: FUROSEMIDE
  12. VORICONAZOLE. [Concomitant]
     Active Substance: VORICONAZOLE
  13. ALBUTEROL. [Concomitant]
     Active Substance: ALBUTEROL
  14. LORATADINE. [Concomitant]
     Active Substance: LORATADINE
  15. PYRIDOXINE [Concomitant]
     Active Substance: PYRIDOXINE

REACTIONS (5)
  - Headache [None]
  - Pyrexia [None]
  - Dyspnoea [None]
  - Asthenia [None]
  - Tachycardia [None]

NARRATIVE: CASE EVENT DATE: 20180604
